FAERS Safety Report 5267371-8 (Version None)
Quarter: 2007Q1

REPORT INFORMATION
  Report Type: 
  Country: None (occurrence: None)
  Receive Date: 20070312
  Receipt Date: 20070301
  Transmission Date: 20070707
  Serious: Yes (Life-Threatening, Hospitalization)
  Sender: FDA-Public Use
  Company Number: 228081

PATIENT
  Age: 78 Year
  Sex: Male

DRUGS (1)
  1. RANIBIZUMAB(RANIBIZUMAB) PWDR + SOLVENT,INFUSION SOLN [Suspect]
     Indication: MACULAR DEGENERATION
     Dosage: INTRAVITREAL
     Dates: start: 20060223

REACTIONS (11)
  - AGITATION [None]
  - ALCOHOL WITHDRAWAL SYNDROME [None]
  - ATRIAL FIBRILLATION [None]
  - BURNING SENSATION [None]
  - CORONARY ARTERY OCCLUSION [None]
  - CULTURE WOUND POSITIVE [None]
  - ENTEROCOCCAL INFECTION [None]
  - HAEMATOCRIT DECREASED [None]
  - MYOCARDIAL INFARCTION [None]
  - PLATELET COUNT DECREASED [None]
  - WOUND INFECTION STAPHYLOCOCCAL [None]
